FAERS Safety Report 4952178-9 (Version None)
Quarter: 2006Q1

REPORT INFORMATION
  Report Type: 
  Country: None (occurrence: None)
  Receive Date: 20060320
  Receipt Date: 20060307
  Transmission Date: 20060701
  Serious: Yes (Hospitalization, Disabling)
  Sender: FDA-Public Use
  Company Number: FABR-11349

PATIENT
  Age: 31 Year
  Sex: Male
  Weight: 68 kg

DRUGS (4)
  1. FABRAZYME [Suspect]
     Indication: FABRY'S DISEASE
     Dosage: 70 MG Q2WKS IV
     Route: 042
  2. TEGRETOL [Concomitant]
  3. ACETAMINOPHEN [Concomitant]
  4. PIRITON [Concomitant]

REACTIONS (7)
  - COUGH [None]
  - DYSPNOEA [None]
  - NASAL CONGESTION [None]
  - PEAK EXPIRATORY FLOW RATE ABNORMAL [None]
  - PRURITUS [None]
  - SYRINGOMYELIA [None]
  - WHEEZING [None]
